FAERS Safety Report 6392191-0 (Version None)
Quarter: 2009Q4

REPORT INFORMATION
  Report Type: 
  Country: None (occurrence: None)
  Receive Date: 20091005
  Receipt Date: 20090924
  Transmission Date: 20100525
  Serious: Yes (Hospitalization)
  Sender: FDA-Public Use
  Company Number: 2009SP026927

PATIENT
  Age: 36 Year
  Sex: Female

DRUGS (5)
  1. ORGARAN [Suspect]
     Indication: DRUG USE FOR UNKNOWN INDICATION
     Dosage: IV
     Route: 042
  2. ASPIRIN [Concomitant]
  3. PREDNISOLONE [Concomitant]
  4. METFORMIN HYDROCHLORIDE [Concomitant]
  5. POLYGAM S/D [Concomitant]

REACTIONS (3)
  - DRUG EXPOSURE DURING PREGNANCY [None]
  - RETROPLACENTAL HAEMATOMA [None]
  - THREATENED LABOUR [None]
